FAERS Safety Report 16024891 (Version 3)
Quarter: 2019Q2

REPORT INFORMATION
  Report Type: Spontaneous
  Country: US (occurrence: US)
  Receive Date: 20190301
  Receipt Date: 20190524
  Transmission Date: 20190711
  Serious: Yes (Hospitalization, Other)
  Sender: FDA-Public Use
  Company Number: US-PFIZER INC-2019082080

PATIENT
  Age: 42 Year
  Sex: Male
  Weight: 94.8 kg

DRUGS (6)
  1. BUPIVACAINE HCL [Suspect]
     Active Substance: BUPIVACAINE HYDROCHLORIDE
     Indication: GOUT
     Dosage: 3.5 ML, SINGLE (3.5ML INJECTION ONCE)
     Route: 014
     Dates: start: 20190102, end: 20190102
  2. DEPO-MEDROL [Concomitant]
     Active Substance: METHYLPREDNISOLONE ACETATE
     Indication: GOUT
     Dosage: UNK, SINGLE, [1 X INJECTION]
     Route: 014
     Dates: start: 20190102, end: 20190102
  3. BUPIVACAINE HCL [Suspect]
     Active Substance: BUPIVACAINE HYDROCHLORIDE
     Indication: PAIN IN EXTREMITY
     Dosage: 1 ML, SINGLE (1ML INJECTION ONCE)
     Route: 014
     Dates: start: 20181115, end: 20181115
  4. DEPO-MEDROL [Concomitant]
     Active Substance: METHYLPREDNISOLONE ACETATE
     Indication: ARTHRALGIA
  5. BUPIVACAINE HCL [Suspect]
     Active Substance: BUPIVACAINE HYDROCHLORIDE
     Indication: ARTHRALGIA
  6. DEPO-MEDROL [Concomitant]
     Active Substance: METHYLPREDNISOLONE ACETATE
     Indication: PAIN IN EXTREMITY
     Dosage: 40 MG, SINGLE
     Route: 014
     Dates: start: 20181115, end: 20181115

REACTIONS (4)
  - Mycobacterium marinum infection [Recovering/Resolving]
  - Off label use [Unknown]
  - Product use issue [Unknown]
  - Product use in unapproved indication [Unknown]

NARRATIVE: CASE EVENT DATE: 20181115
